FAERS Safety Report 6730272-X (Version None)
Quarter: 2010Q2

REPORT INFORMATION
  Report Type: 
  Country: None (occurrence: None)
  Receive Date: 20100518
  Receipt Date: 20100507
  Transmission Date: 20101027
  Serious: Yes (Hospitalization, Other)
  Sender: FDA-Public Use
  Company Number: JP-ROCHE-673578

PATIENT
  Sex: Female
  Weight: 43 kg

DRUGS (37)
  1. ACTEMRA [Suspect]
     Indication: RHEUMATOID ARTHRITIS
     Route: 042
     Dates: start: 20080605, end: 20080605
  2. ACTEMRA [Suspect]
     Route: 042
     Dates: start: 20080701, end: 20080701
  3. ACTEMRA [Suspect]
     Route: 042
     Dates: start: 20080722, end: 20080722
  4. ACTEMRA [Suspect]
     Route: 042
     Dates: start: 20080818, end: 20080818
  5. ACTEMRA [Suspect]
     Route: 042
     Dates: start: 20080908, end: 20080908
  6. ACTEMRA [Suspect]
     Route: 042
     Dates: start: 20081006, end: 20081006
  7. ACTEMRA [Suspect]
     Route: 042
     Dates: start: 20081027, end: 20081027
  8. ACTEMRA [Suspect]
     Route: 042
     Dates: start: 20081117, end: 20081117
  9. ACTEMRA [Suspect]
     Route: 042
     Dates: start: 20081215, end: 20081215
  10. ACTEMRA [Suspect]
     Route: 042
     Dates: start: 20090105, end: 20090105
  11. ACTEMRA [Suspect]
     Route: 042
     Dates: start: 20090202, end: 20090202
  12. ACTEMRA [Suspect]
     Route: 042
     Dates: start: 20090302, end: 20090302
  13. ACTEMRA [Suspect]
     Route: 042
     Dates: start: 20090406, end: 20090406
  14. ACTEMRA [Suspect]
     Route: 042
     Dates: start: 20090427, end: 20090427
  15. ACTEMRA [Suspect]
     Route: 042
     Dates: start: 20090525, end: 20090525
  16. ACTEMRA [Suspect]
     Route: 042
     Dates: end: 20091026
  17. ACTEMRA [Suspect]
     Route: 042
     Dates: start: 20100113
  18. PREDONINE [Concomitant]
     Route: 048
     Dates: end: 20081117
  19. PREDONINE [Concomitant]
     Route: 048
     Dates: start: 20081118
  20. MARZULENE [Concomitant]
     Route: 048
  21. MARZULENE [Concomitant]
     Route: 048
  22. JUVELA-N [Concomitant]
     Route: 048
  23. JUVELA-N [Concomitant]
     Route: 048
  24. OPALMON [Concomitant]
     Route: 048
  25. BONALON [Concomitant]
     Route: 048
  26. BONALON [Concomitant]
     Route: 048
  27. KETOPROFEN [Concomitant]
     Dosage: FORM: TAPE. SINGLE USE. NOTE: TAKEN AS NEEDED.
     Route: 061
  28. VOLTAREN [Concomitant]
     Dosage: SINGLE USE. NOTE: TAKEN AS NEEDED.
     Route: 061
  29. PARIET [Concomitant]
     Route: 048
  30. MOBIC [Concomitant]
     Route: 048
  31. NORVASC [Concomitant]
     Route: 048
  32. ACTEMRA [Concomitant]
     Route: 041
     Dates: start: 20100113
  33. PREDNISOLONE [Concomitant]
     Route: 048
     Dates: end: 20081117
  34. PREDNISOLONE [Concomitant]
     Route: 048
     Dates: end: 20081118
  35. PREDNISOLONE [Concomitant]
     Route: 048
  36. URSO 250 [Concomitant]
     Route: 048
  37. BARACLUDE [Concomitant]
     Route: 048

REACTIONS (5)
  - INFECTION [None]
  - INFUSION SITE ERYTHEMA [None]
  - INFUSION SITE PRURITUS [None]
  - INJECTION SITE SWELLING [None]
  - INTESTINAL OBSTRUCTION [None]
